FAERS Safety Report 5150029-3 (Version None)
Quarter: 2006Q4

REPORT INFORMATION
  Report Type: 
  Country: None (occurrence: None)
  Receive Date: 20061108
  Receipt Date: 20061027
  Transmission Date: 20070319
  Serious: No
  Sender: FDA-Public Use
  Company Number: 20063239

PATIENT
  Sex: Male

DRUGS (1)
  1. LIORESAL [Suspect]
     Indication: MUSCLE SPASTICITY
     Dosage: 210 MCG, DAILY, INTRATHECAL
     Route: 037

REACTIONS (9)
  - CONDITION AGGRAVATED [None]
  - DISCOMFORT [None]
  - DRUG EFFECT DECREASED [None]
  - HYPERAEMIA [None]
  - MUSCLE SPASTICITY [None]
  - MUSCLE TIGHTNESS [None]
  - PAIN [None]
  - PRIAPISM [None]
  - RESTLESSNESS [None]
